FAERS Safety Report 6820648-4 (Version None)
Quarter: 2010Q3

REPORT INFORMATION
  Report Type: 
  Country: None (occurrence: None)
  Receive Date: 20100707
  Receipt Date: 20100601
  Transmission Date: 20110219
  Serious: Yes (Hospitalization)
  Sender: FDA-Public Use
  Company Number: DE-BIOGENIDEC-2010BI013181

PATIENT
  Age: 44 Year
  Sex: Female
  Weight: 55 kg

DRUGS (5)
  1. AVONEX [Suspect]
     Indication: RELAPSING-REMITTING MULTIPLE SCLEROSIS
     Route: 030
     Dates: start: 20091116
  2. BACLOFEN [Concomitant]
     Indication: MUSCLE SPASTICITY
     Route: 048
  3. OXYBUTYNIN CHLORIDE [Concomitant]
     Indication: BLADDER DISORDER
     Route: 048
  4. IBUPROFEN [Concomitant]
     Indication: PROPHYLAXIS
     Route: 048
  5. SPASMEX [Concomitant]
     Indication: BLADDER DISORDER
     Route: 048

REACTIONS (3)
  - ABSCESS LIMB [None]
  - ACTIVITIES OF DAILY LIVING IMPAIRED [None]
  - MULTIPLE SCLEROSIS RELAPSE [None]
